FAERS Safety Report 24901076 (Version 1)
Quarter: 2025Q1

REPORT INFORMATION
  Report Type: Spontaneous
  Country: CA (occurrence: CA)
  Receive Date: 20250129
  Receipt Date: 20250129
  Transmission Date: 20250408
  Serious: Yes (Hospitalization)
  Sender: GE HEALTHCARE
  Company Number: CA-GE HEALTHCARE-2025CSU000980

PATIENT
  Age: 29 Year
  Sex: Female

DRUGS (1)
  1. OMNIPAQUE [Suspect]
     Active Substance: IOHEXOL
     Indication: Computerised tomogram
     Route: 042

REACTIONS (10)
  - Resuscitation [Unknown]
  - Respiratory rate increased [Unknown]
  - Sneezing [Unknown]
  - Seizure [Unknown]
  - Dyspnoea [Unknown]
  - Pallor [Unknown]
  - Hyperhidrosis [Unknown]
  - Vomiting [Unknown]
  - Retching [Unknown]
  - Nausea [Unknown]
